FAERS Safety Report 14963387 (Version 1)
Quarter: 2018Q2

REPORT INFORMATION
  Report Type: Spontaneous
  Country: US (occurrence: US)
  Receive Date: 20180601
  Receipt Date: 20180601
  Transmission Date: 20180711
  Serious: No
  Sender: FDA-Public Use
  Company Number: US-ABBVIE-17P-163-2033563-00

PATIENT
  Age: 48 Year
  Sex: Male

DRUGS (6)
  1. ALPRAZOLAM. [Concomitant]
     Active Substance: ALPRAZOLAM
     Indication: PANIC ATTACK
  2. DRONABINOL. [Suspect]
     Active Substance: DRONABINOL
     Indication: DECREASED APPETITE
     Dosage: 3 TO 4 TIMES DAILY
     Route: 048
     Dates: start: 201704, end: 201705
  3. DRONABINOL. [Suspect]
     Active Substance: DRONABINOL
     Route: 048
     Dates: start: 201705
  4. ALPRAZOLAM. [Concomitant]
     Active Substance: ALPRAZOLAM
     Indication: ANXIETY
     Route: 065
  5. OXYCODONE [Concomitant]
     Active Substance: OXYCODONE
     Indication: OROPHARYNGEAL PAIN
     Route: 065
  6. DILAUDID [Concomitant]
     Active Substance: HYDROMORPHONE HYDROCHLORIDE
     Indication: PAIN
     Route: 065

REACTIONS (2)
  - Decreased appetite [Recovered/Resolved]
  - Drug ineffective [Recovered/Resolved]

NARRATIVE: CASE EVENT DATE: 201704
